FAERS Safety Report 25086088 (Version 1)
Quarter: 2025Q1

REPORT INFORMATION
  Report Type: Spontaneous
  Country: US (occurrence: US)
  Receive Date: 20250317
  Receipt Date: 20250317
  Transmission Date: 20250408
  Serious: Yes (Hospitalization)
  Sender: PFIZER
  Company Number: US-PFIZER INC-PV202500030409

PATIENT
  Age: 74 Year
  Sex: Male

DRUGS (2)
  1. RIFABUTIN [Interacting]
     Active Substance: RIFABUTIN
     Dates: end: 20250227
  2. VORICONAZOLE [Interacting]
     Active Substance: VORICONAZOLE

REACTIONS (3)
  - Drug ineffective [Unknown]
  - Drug interaction [Unknown]
  - Contraindicated product administered [Unknown]
